FAERS Safety Report 9034398 (Version 2)
Quarter: 2013Q1

REPORT INFORMATION
  Report Type: Spontaneous
  Country: JP (occurrence: JP)
  Receive Date: 20130128
  Receipt Date: 20130206
  Transmission Date: 20140127
  Serious: Yes (Hospitalization)
  Sender: FDA-Public Use
  Company Number: JP-BRISTOL-MYERS SQUIBB COMPANY-17277179

PATIENT
  Age: 72 Year
  Sex: 0

DRUGS (2)
  1. IRBETAN [Suspect]
     Indication: HYPERTENSION
     Route: 048
  2. ADALAT-CR [Suspect]
     Indication: HYPERTENSION
     Route: 048

REACTIONS (2)
  - Hyponatraemia [Recovered/Resolved]
  - Blood pressure increased [Unknown]
